FAERS Safety Report 7738830-0 (Version None)
Quarter: 2011Q3

REPORT INFORMATION
  Report Type: 
  Country: None (occurrence: None)
  Receive Date: 20110909
  Receipt Date: 20110901
  Transmission Date: 20111222
  Serious: Yes (Death, Hospitalization)
  Sender: FDA-Public Use
  Company Number: US-BIOGENIDEC-2011BI011176

PATIENT
  Age: 59 Year
  Sex: Female

DRUGS (16)
  1. BISOPROLOL FUMARATE [Concomitant]
     Route: 048
  2. SIMVASTATIN [Concomitant]
     Route: 048
  3. MILK OF MAGNESIA TAB [Concomitant]
     Indication: CONSTIPATION
  4. BACLOFEN [Concomitant]
     Route: 048
  5. TYSABRI [Suspect]
     Indication: PRODUCT USED FOR UNKNOWN INDICATION
     Route: 042
     Dates: start: 20090325, end: 20110124
  6. XANAX [Concomitant]
     Indication: ANXIETY
     Route: 048
  7. NEXIUM [Concomitant]
     Route: 048
  8. CALCIUM CARBONATE [Concomitant]
     Route: 048
  9. TIZANIDINE HCL [Concomitant]
     Route: 048
  10. DOCUSATE [Concomitant]
     Indication: CONSTIPATION
     Route: 048
  11. METFORMIN [Concomitant]
     Indication: DIABETES MELLITUS
     Route: 048
  12. SLIDING SCALE INSULIN [Concomitant]
     Indication: DIABETES MELLITUS
     Route: 058
     Dates: start: 20110301
  13. ASPIRIN [Concomitant]
     Route: 048
  14. BISACODYL [Concomitant]
     Indication: CONSTIPATION
     Route: 048
  15. HYDROCHLOROTHIAZIDE [Concomitant]
     Route: 048
  16. GLARGINE INSULIN [Concomitant]
     Indication: DIABETES MELLITUS
     Route: 058
     Dates: start: 20110301

REACTIONS (2)
  - PROGRESSIVE MULTIFOCAL LEUKOENCEPHALOPATHY [None]
  - SUBCUTANEOUS HAEMATOMA [None]
